FAERS Safety Report 8776692 (Version 1)
Quarter: 2012Q4

REPORT INFORMATION
  Report Type: 
  Country: GB (occurrence: GB)
  Receive Date: 20120906
  Receipt Date: 20120906
  Transmission Date: 20130627
  Serious: Yes (Life-Threatening, Hospitalization, Other)
  Sender: FDA-Public Use
  Company Number: GB-ELI_LILLY_AND_COMPANY-GB201208009538

PATIENT
  Age: 40 Year
  Sex: Female
  Weight: 60 kg

DRUGS (9)
  1. FLUOXETINE HYDROCHLORIDE [Suspect]
     Indication: DEPRESSION
     Dosage: 20 mg, UNK
     Route: 048
     Dates: start: 20020801
  2. DOSULEPIN [Concomitant]
     Indication: DEPRESSION
     Dosage: 25 mg, UNK
     Route: 048
     Dates: start: 20050801, end: 20120813
  3. ROBAXIN [Concomitant]
     Indication: BACK PAIN
     Dosage: 750 mg, UNK
     Route: 048
     Dates: start: 20120806, end: 20120811
  4. GABAPENTIN [Concomitant]
  5. LANSOPRAZOLE [Concomitant]
  6. NAPROXEN [Concomitant]
  7. ORAMORPH [Concomitant]
  8. PARACETAMOL [Concomitant]
  9. TRAMADOL [Concomitant]

REACTIONS (8)
  - Rhabdomyolysis [Recovered/Resolved]
  - Metabolic acidosis [Recovered/Resolved]
  - Confusional state [Unknown]
  - Depressed level of consciousness [Unknown]
  - Hypernatraemia [Recovered/Resolved]
  - Pyrexia [Recovered/Resolved]
  - Chills [Unknown]
  - Transaminases increased [Unknown]
